FAERS Safety Report 16952796 (Version 1)
Quarter: 2019Q4

REPORT INFORMATION
  Report Type: Spontaneous
  Country: IN (occurrence: IN)
  Receive Date: 20191023
  Receipt Date: 20191023
  Transmission Date: 20200122
  Serious: Yes (Hospitalization)
  Sender: FDA-Public Use
  Company Number: IN-LEADING PHARMA, LLC-2075968

PATIENT
  Age: 5 Month
  Sex: Female

DRUGS (2)
  1. FUROSEMIDE. [Suspect]
     Active Substance: FUROSEMIDE
  2. SALBUTAMOL [Interacting]
     Active Substance: ALBUTEROL

REACTIONS (2)
  - Drug interaction [None]
  - Hypokalaemia [None]
